FAERS Safety Report 5189050-8 (Version None)
Quarter: 2006Q4

REPORT INFORMATION
  Report Type: 
  Country: None (occurrence: None)
  Receive Date: 20061221
  Receipt Date: 20061212
  Transmission Date: 20070319
  Serious: Yes (Hospitalization)
  Sender: FDA-Public Use
  Company Number: HK-ELI_LILLY_AND_COMPANY-HK200612001873

PATIENT
  Age: 79 Year
  Sex: Female

DRUGS (2)
  1. CYMBALTA [Suspect]
     Indication: MAJOR DEPRESSION
     Dosage: 30 MG, DAILY (1/D)
     Dates: start: 20060904, end: 20060911
  2. MIRTAZAPINE [Concomitant]
     Indication: MAJOR DEPRESSION
     Dates: end: 20060911

REACTIONS (1)
  - HEPATIC ENZYME INCREASED [None]
